FAERS Safety Report 20580389 (Version 5)
Quarter: 2022Q3

REPORT INFORMATION
  Report Type: Report from Study
  Country: US (occurrence: None)
  Receive Date: 20220311
  Receipt Date: 20220714
  Transmission Date: 20221027
  Serious: Yes (Other)
  Sender: FDA-Public Use
  Company Number: US-Merck Healthcare KGaA-9283958

PATIENT
  Age: 41 Year
  Sex: Female

DRUGS (4)
  1. REBIF [Suspect]
     Active Substance: INTERFERON BETA-1A
     Indication: Multiple sclerosis
     Dosage: PREVIOUSLY: REBIF PREFILLED SYRINGE
     Route: 058
     Dates: start: 20140225, end: 2022
  2. TYLENOL [Concomitant]
     Active Substance: ACETAMINOPHEN
     Indication: Migraine
  3. IBUPROFEN [Concomitant]
     Active Substance: IBUPROFEN
     Indication: Migraine
  4. TREXIMET [Concomitant]
     Active Substance: NAPROXEN SODIUM\SUMATRIPTAN SUCCINATE
     Indication: Migraine

REACTIONS (9)
  - Hypothalamo-pituitary disorder [Recovered/Resolved]
  - Blood bilirubin increased [Not Recovered/Not Resolved]
  - Hepatic enzyme increased [Not Recovered/Not Resolved]
  - Haemangioma of liver [Unknown]
  - Blood follicle stimulating hormone decreased [Unknown]
  - Menstruation irregular [Unknown]
  - Cholelithiasis [Unknown]
  - Stress [Recovering/Resolving]
  - Menstrual disorder [Unknown]

NARRATIVE: CASE EVENT DATE: 20150101
